FAERS Safety Report 9809257 (Version 2)
Quarter: 2014Q1

REPORT INFORMATION
  Report Type: Spontaneous
  Country: US (occurrence: US)
  Receive Date: 20140110
  Receipt Date: 20140110
  Transmission Date: 20141002
  Serious: Yes (Other)
  Sender: FDA-Public Use
  Company Number: US-CELGENEUS-163-21880-13040925

PATIENT
  Age: 78 Year
  Sex: Male
  Weight: 64.4 kg

DRUGS (21)
  1. REVLIMID [Suspect]
     Indication: PLASMA CELL MYELOMA
     Dosage: 5 MILLIGRAM
     Route: 048
     Dates: start: 20130307
  2. VIAGRA [Concomitant]
     Indication: PRODUCT USED FOR UNKNOWN INDICATION
     Route: 048
  3. NEXIUM [Concomitant]
     Indication: PRODUCT USED FOR UNKNOWN INDICATION
     Route: 048
  4. METOPROLOL SUCCINATE ER [Concomitant]
     Indication: PRODUCT USED FOR UNKNOWN INDICATION
     Dosage: 100 MILLIGRAM
     Route: 048
  5. ZOLPIDEM TARTRATE [Concomitant]
     Indication: PRODUCT USED FOR UNKNOWN INDICATION
     Route: 048
  6. DULERA [Concomitant]
     Indication: PRODUCT USED FOR UNKNOWN INDICATION
     Dosage: 200 MCG/5 MCG
     Route: 055
  7. CALCIUM [Concomitant]
     Indication: PRODUCT USED FOR UNKNOWN INDICATION
     Route: 048
  8. GLUCOSAMINE CHONDROITIN TB [Concomitant]
     Indication: PRODUCT USED FOR UNKNOWN INDICATION
     Dosage: 1500 MILLIGRAM
     Route: 048
  9. FISH OIL [Concomitant]
     Indication: PRODUCT USED FOR UNKNOWN INDICATION
     Route: 065
  10. ZOMETA [Concomitant]
     Indication: PRODUCT USED FOR UNKNOWN INDICATION
     Route: 041
  11. DECADRON [Concomitant]
     Indication: PRODUCT USED FOR UNKNOWN INDICATION
     Dosage: 40 MILLIGRAM
     Route: 048
  12. DECADRON [Concomitant]
     Route: 065
  13. BENADRYL [Concomitant]
     Indication: PRURITUS
     Route: 048
  14. BENADRYL [Concomitant]
     Indication: RASH
  15. BENADRYL [Concomitant]
     Indication: SWELLING
  16. CALADRYL [Concomitant]
     Indication: PRURITUS
     Route: 061
  17. CALADRYL [Concomitant]
     Indication: RASH
  18. OMEGA 3 FATTY ACID [Concomitant]
     Indication: PRODUCT USED FOR UNKNOWN INDICATION
     Route: 048
  19. IPRATROPIUM/ALBUTEROL [Concomitant]
     Indication: PRODUCT USED FOR UNKNOWN INDICATION
     Route: 065
  20. FLUTICASONE/SALMETEROL [Concomitant]
     Indication: PRODUCT USED FOR UNKNOWN INDICATION
     Dosage: 100-50MCG
     Route: 048
  21. BUFFERED LIDOCAINE [Concomitant]
     Indication: PRODUCT USED FOR UNKNOWN INDICATION
     Route: 065

REACTIONS (10)
  - Cardiac disorder [Unknown]
  - Ulcer haemorrhage [Unknown]
  - Herpes zoster [Unknown]
  - Rash [Not Recovered/Not Resolved]
  - Drug dose omission [Unknown]
  - Pneumonia [Unknown]
  - Pain in extremity [Unknown]
  - Muscle spasms [Unknown]
  - Hypoaesthesia [Unknown]
  - Musculoskeletal chest pain [Unknown]
